FAERS Safety Report 14262354 (Version 1)
Quarter: 2017Q4

REPORT INFORMATION
  Report Type: Spontaneous
  Country: US (occurrence: US)
  Receive Date: 20171208
  Receipt Date: 20171208
  Transmission Date: 20180321
  Serious: Yes (Other)
  Sender: FDA-Public Use
  Company Number: US-AMGEN-USASP2017181681

PATIENT
  Age: 60 Year
  Sex: Female

DRUGS (2)
  1. ENBREL [Suspect]
     Active Substance: ETANERCEPT
     Indication: PRODUCT USED FOR UNKNOWN INDICATION
     Dosage: UNK
     Route: 065
  2. MODAFINIL. [Concomitant]
     Active Substance: MODAFINIL
     Dosage: UNK

REACTIONS (6)
  - Adverse reaction [Unknown]
  - Somnolence [Unknown]
  - Lung abscess [Unknown]
  - Productive cough [Unknown]
  - Tremor [Unknown]
  - Sputum discoloured [Unknown]

NARRATIVE: CASE EVENT DATE: 2004
